FAERS Safety Report 19781421 (Version 1)
Quarter: 2021Q3

REPORT INFORMATION
  Report Type: Report from Study
  Country: DE (occurrence: DE)
  Receive Date: 20210902
  Receipt Date: 20210902
  Transmission Date: 20211014
  Serious: Yes (Death, Life-Threatening, Hospitalization, Other)
  Sender: FDA-Public Use
  Company Number: DE-MYLANLABS-2021M1048283

PATIENT
  Age: 74 Year
  Sex: Male
  Weight: 98.5 kg

DRUGS (3)
  1. CALCIUM LEVOFOLINATE [Suspect]
     Active Substance: LEVOLEUCOVORIN CALCIUM
     Indication: COLORECTAL CANCER METASTATIC
     Dosage: 700 MILLIGRAM, BIWEEKLY (700 MG, QOW)
     Route: 042
     Dates: start: 20210118, end: 20210118
  2. OXALIPLATIN. [Suspect]
     Active Substance: OXALIPLATIN
     Indication: COLORECTAL CANCER METASTATIC
     Dosage: 136 MILLIGRAM, BIWEEKLY (136 MG, QOW)
     Route: 042
     Dates: start: 20210118, end: 20210118
  3. 5?FU                               /00098801/ [Suspect]
     Active Substance: FLUOROURACIL
     Indication: COLORECTAL CANCER METASTATIC
     Dosage: 3840 MILLIGRAM, BIWEEKLY (3840 MG, QOW)
     Route: 042
     Dates: start: 20210118, end: 20210118

REACTIONS (2)
  - Cerebellar infarction [Fatal]
  - Dehydration [Not Recovered/Not Resolved]

NARRATIVE: CASE EVENT DATE: 20210201
